FAERS Safety Report 17868918 (Version 1)
Quarter: 2020Q2

REPORT INFORMATION
  Report Type: Report from Study
  Country: None (occurrence: US)
  Receive Date: 20200607
  Receipt Date: 20200607
  Transmission Date: 20200714
  Serious: Yes (Hospitalization)
  Sender: FDA-Public Use
  Company Number: US-ABBVIE-19K-163-3188190-00

PATIENT
  Sex: Female

DRUGS (1)
  1. HUMIRA [Suspect]
     Active Substance: ADALIMUMAB
     Indication: PSORIASIS
     Route: 058

REACTIONS (8)
  - Bacterial infection [Recovering/Resolving]
  - Cardiac disorder [Recovering/Resolving]
  - Dehydration [Unknown]
  - Blood pressure decreased [Recovering/Resolving]
  - Furuncle [Not Recovered/Not Resolved]
  - Hidradenitis [Unknown]
  - Renal disorder [Recovering/Resolving]
  - Rash papular [Not Recovered/Not Resolved]
